FAERS Safety Report 7366191-8 (Version None)
Quarter: 2011Q1

REPORT INFORMATION
  Report Type: 
  Country: None (occurrence: None)
  Receive Date: 20110322
  Receipt Date: 20110315
  Transmission Date: 20110831
  Serious: Yes (Hospitalization)
  Sender: FDA-Public Use
  Company Number: GB-AMGEN-GBRSP2011006189

PATIENT
  Age: 72 Year
  Sex: Male
  Weight: 75.7 kg

DRUGS (8)
  1. ARANESP [Suspect]
     Indication: NEPHROGENIC ANAEMIA
     Dosage: UNK UNK, QWK
     Dates: start: 20090901
  2. BISOPROLOL [Concomitant]
     Dosage: 2.5 MG, UNK
     Route: 048
  3. ATORVASTATIN CALCIUM [Concomitant]
     Dosage: 10 UNK, UNK
     Route: 048
  4. LANSOPRAZOLE [Concomitant]
     Dosage: 30 MG, UNK
     Route: 048
  5. ASPIRIN [Concomitant]
     Dosage: 75 MG, UNK
     Route: 048
  6. FUROSEMIDE [Concomitant]
     Dosage: 40 MG, UNK
     Route: 048
  7. ARANESP [Suspect]
     Dosage: 60 A?G, QWK
     Dates: start: 20110107, end: 20110118
  8. IRON                               /00023503/ [Concomitant]
     Route: 042

REACTIONS (1)
  - APLASIA PURE RED CELL [None]
